FAERS Safety Report 4988539-1 (Version None)
Quarter: 2006Q2

REPORT INFORMATION
  Report Type: 
  Country: None (occurrence: None)
  Receive Date: 20060502
  Receipt Date: 20060417
  Transmission Date: 20061013
  Serious: Yes (Hospitalization, Other)
  Sender: FDA-Public Use
  Company Number: US-GLAXOSMITHKLINE-A0601985A

PATIENT
  Age: 54 Year
  Sex: Female
  Weight: 85.5 kg

DRUGS (1)
  1. AVANDARYL [Suspect]
     Route: 048
     Dates: start: 20060327, end: 20060410

REACTIONS (9)
  - ABDOMINAL PAIN [None]
  - ANOREXIA [None]
  - BILE DUCT OBSTRUCTION [None]
  - HEPATIC ENZYME INCREASED [None]
  - HEPATITIS CHOLESTATIC [None]
  - JAUNDICE [None]
  - NAUSEA [None]
  - PANCREATIC MASS [None]
  - VOMITING [None]
